FAERS Safety Report 7130402-4 (Version None)
Quarter: 2010Q4

REPORT INFORMATION
  Report Type: 
  Country: None (occurrence: None)
  Receive Date: 20101101
  Receipt Date: 20100713
  Transmission Date: 20110411
  Serious: No
  Sender: FDA-Public Use
  Company Number: 2010-09536

PATIENT
  Age: 75 Year
  Sex: Male
  Weight: 81.6 kg

DRUGS (1)
  1. RAPAFLO [Suspect]
     Indication: BLADDER NECK OBSTRUCTION
     Dosage: 8 MG, QHS, ORAL
     Route: 048
     Dates: start: 20100615, end: 20100617

REACTIONS (1)
  - MENTAL STATUS CHANGES [None]
